FAERS Safety Report 6805731-1 (Version None)
Quarter: 2010Q2

REPORT INFORMATION
  Report Type: 
  Country: None (occurrence: None)
  Receive Date: 20100628
  Receipt Date: 20081124
  Transmission Date: 20101027
  Serious: No
  Sender: FDA-Public Use
  Company Number: US-PFIZER INC-2008053204

PATIENT
  Sex: Female
  Weight: 73.4 kg

DRUGS (1)
  1. SUTENT [Suspect]
     Indication: COLON CANCER

REACTIONS (1)
  - HEPATIC ENZYME INCREASED [None]
